FAERS Safety Report 25944445 (Version 1)
Quarter: 2025Q4

REPORT INFORMATION
  Report Type: Spontaneous
  Country: US (occurrence: None)
  Receive Date: 20251021
  Receipt Date: 20251021
  Transmission Date: 20260119
  Serious: Yes (Hospitalization)
  Sender: FDA-CTU
  Company Number: None

PATIENT
  Age: 75 Year
  Sex: Male
  Weight: 66 kg

DRUGS (1)
  1. BIMZELX [Suspect]
     Active Substance: BIMEKIZUMAB-BKZX
     Indication: Psoriasis
     Dosage: OTHER FREQUENCY : EVERY 8 WEEKS;?
     Route: 058
     Dates: start: 20241028, end: 20250916

REACTIONS (5)
  - Abdominal discomfort [None]
  - Salmonella test positive [None]
  - Sepsis [None]
  - Hypovolaemia [None]
  - Acute kidney injury [None]

NARRATIVE: CASE EVENT DATE: 20250916
